FAERS Safety Report 5057767-1 (Version None)
Quarter: 2006Q3

REPORT INFORMATION
  Report Type: 
  Country: None (occurrence: None)
  Receive Date: 20060721
  Receipt Date: 20060208
  Transmission Date: 20061208
  Serious: No
  Sender: FDA-Public Use
  Company Number: US-GLAXOSMITHKLINE-A0592857A

PATIENT
  Age: 60 Year
  Sex: Male

DRUGS (10)
  1. AVANDIA [Suspect]
     Dosage: 2MG THREE TIMES PER DAY
     Route: 048
     Dates: start: 20060207
  2. METFORMIN [Suspect]
     Dosage: 500MG THREE TIMES PER DAY
     Route: 048
     Dates: start: 20060207
  3. KLOR-CON [Concomitant]
  4. OXAPROZIN [Concomitant]
  5. PAROXETINE HCL [Concomitant]
  6. HYDROCHLOROTHIAZIDE [Concomitant]
  7. CLARINEX [Concomitant]
  8. LIPITOR [Concomitant]
  9. PROTONIX [Concomitant]
  10. LOTREL [Concomitant]

REACTIONS (1)
  - BLOOD GLUCOSE INCREASED [None]
